FAERS Safety Report 6661231-3 (Version None)
Quarter: 2010Q1

REPORT INFORMATION
  Report Type: 
  Country: None (occurrence: None)
  Receive Date: 20100331
  Receipt Date: 20100324
  Transmission Date: 20100710
  Serious: Yes (Death)
  Sender: FDA-Public Use
  Company Number: JP-ROCHE-693846

PATIENT
  Age: 55 Year
  Sex: Female

DRUGS (4)
  1. AVASTIN [Suspect]
     Indication: COLON CANCER METASTATIC
     Route: 041
  2. ELPLAT [Concomitant]
     Route: 041
  3. FLUOROURACIL [Concomitant]
     Dosage: ROUTE: BOLUS, DRIP
     Route: 042
  4. LEVOFOLINATE [Concomitant]
     Route: 041

REACTIONS (1)
  - DISEASE PROGRESSION [None]
